FAERS Safety Report 9968538 (Version 1)
Quarter: 2014Q1

REPORT INFORMATION
  Report Type: Report from Study
  Country: US (occurrence: US)
  Receive Date: 20140306
  Receipt Date: 20140306
  Transmission Date: 20141002
  Serious: Yes (Hospitalization)
  Sender: FDA-Public Use
  Company Number: US-ABBVIE-13P-163-1146994-00

PATIENT
  Age: 21 Year
  Sex: Female

DRUGS (3)
  1. HUMIRA [Suspect]
     Indication: COLITIS ULCERATIVE
     Dosage: ONCE
     Dates: start: 201305, end: 201305
  2. HUMIRA [Suspect]
     Dosage: ONCE
     Dates: start: 201305, end: 201305
  3. HUMIRA [Suspect]
     Dates: start: 201306, end: 20130701

REACTIONS (4)
  - Colitis ulcerative [Unknown]
  - Pain in extremity [Unknown]
  - Injection site reaction [Unknown]
  - Haematochezia [Unknown]
